FAERS Safety Report 6216813-X (Version None)
Quarter: 2009Q2

REPORT INFORMATION
  Report Type: 
  Country: None (occurrence: None)
  Receive Date: 20090603
  Receipt Date: 20090603
  Transmission Date: 20091009
  Serious: Yes (Death)
  Sender: FDA-Public Use
  Company Number: None

PATIENT
  Age: 90 Year
  Sex: Female
  Weight: 49.8957 kg

DRUGS (2)
  1. LANOXIN [Suspect]
     Indication: ATRIAL FIBRILLATION
     Dosage: .125 MG 1/DAY
     Dates: start: 19950101, end: 20090413
  2. LANOXIN [Suspect]
     Indication: HEART RATE IRREGULAR
     Dosage: .125 MG 1/DAY
     Dates: start: 19950101, end: 20090413

REACTIONS (4)
  - ANAEMIA [None]
  - CORONARY ARTERY THROMBOSIS [None]
  - THROMBOSIS [None]
  - TUMOUR HAEMORRHAGE [None]
